FAERS Safety Report 7232551-9 (Version None)
Quarter: 2011Q1

REPORT INFORMATION
  Report Type: 
  Country: None (occurrence: None)
  Receive Date: 20110107
  Receipt Date: 20101227
  Transmission Date: 20110831
  Serious: Yes (Hospitalization, Other)
  Sender: FDA-Public Use
  Company Number: 018078

PATIENT
  Sex: Male
  Weight: 20.3 kg

DRUGS (6)
  1. TRILEPTAL [Concomitant]
  2. DIASTAT [Concomitant]
  3. LACOSAMIDE [Suspect]
     Indication: PARTIAL SEIZURES
     Dosage: SEE IMAGE
     Route: 048
     Dates: start: 20100901
  4. LACOSAMIDE [Suspect]
     Indication: PARTIAL SEIZURES
     Dosage: SEE IMAGE
     Route: 048
     Dates: start: 20100622
  5. LACOSAMIDE [Suspect]
     Indication: PARTIAL SEIZURES
     Dosage: SEE IMAGE
     Route: 048
     Dates: start: 20100623, end: 20100901
  6. LAMICTAL [Concomitant]

REACTIONS (10)
  - ATAXIA [None]
  - CONVULSION [None]
  - HYPERTONIA [None]
  - PSYCHOMOTOR RETARDATION [None]
  - GAIT DISTURBANCE [None]
  - HEMIPARESIS [None]
  - HYPERSOMNIA [None]
  - TOXICITY TO VARIOUS AGENTS [None]
  - HYPERREFLEXIA [None]
  - CLONUS [None]
